FAERS Safety Report 19580927 (Version 1)
Quarter: 2021Q3

REPORT INFORMATION
  Report Type: Spontaneous
  Country: US (occurrence: US)
  Receive Date: 20210719
  Receipt Date: 20210719
  Transmission Date: 20211014
  Serious: No
  Sender: FDA-Public Use
  Company Number: None

PATIENT
  Age: 42 Year
  Sex: Male
  Weight: 102.3 kg

DRUGS (4)
  1. CLINDAMYCIN. [Concomitant]
     Active Substance: CLINDAMYCIN
  2. VITAMIN D [Concomitant]
     Active Substance: VITAMIN D NOS
  3. KEPPRA [Concomitant]
     Active Substance: LEVETIRACETAM
  4. LORBRENA [Suspect]
     Active Substance: LORLATINIB
     Route: 048
     Dates: start: 20210708

REACTIONS (3)
  - Aphasia [None]
  - Rash [None]
  - Dysarthria [None]

NARRATIVE: CASE EVENT DATE: 20210719
